FAERS Safety Report 19380541 (Version 7)
Quarter: 2022Q1

REPORT INFORMATION
  Report Type: Spontaneous
  Country: GB (occurrence: GB)
  Receive Date: 20210607
  Receipt Date: 20220210
  Transmission Date: 20220423
  Serious: Yes (Hospitalization, Other)
  Sender: FDA-Public Use
  Company Number: GB-MYLANLABS-2021M1032660

PATIENT
  Age: 26 Year
  Sex: Female

DRUGS (10)
  1. CLOZARIL [Suspect]
     Active Substance: CLOZAPINE
     Indication: Schizophrenia
     Dosage: UNK
     Route: 048
     Dates: start: 20200710
  2. CLOZARIL [Suspect]
     Active Substance: CLOZAPINE
     Dosage: START DATE: 19-AUG-2021
     Route: 048
  3. CLOZARIL [Suspect]
     Active Substance: CLOZAPINE
     Dosage: UNK, 150 MILLIGRAM, AM AND 450 MG ON
     Route: 048
     Dates: start: 20200710
  4. AMISULPRIDE [Concomitant]
     Active Substance: AMISULPRIDE
     Indication: Schizophrenia
     Dosage: UNK
     Route: 048
     Dates: end: 20200907
  5. POLYETHYLENE GLYCOL 3350\POTASSIUM CHLORIDE\SODIUM BICARBONATE\SODIUM [Concomitant]
     Active Substance: POLYETHYLENE GLYCOL 3350\POTASSIUM CHLORIDE\SODIUM BICARBONATE\SODIUM CHLORIDE
     Indication: Constipation
     Dosage: UNK
     Route: 048
  6. LITHIUM CARBONATE [Concomitant]
     Active Substance: LITHIUM CARBONATE
     Indication: White blood cell count decreased
     Dosage: UNK
     Route: 048
  7. SENNA [Concomitant]
     Active Substance: SENNA LEAF\SENNOSIDES\SENNOSIDES A AND B
     Indication: Constipation
     Dosage: UNK
     Route: 048
  8. CLONAZEPAM [Concomitant]
     Active Substance: CLONAZEPAM
     Indication: Agitation
     Dosage: UNK
     Route: 048
     Dates: end: 20200907
  9. CYANOCOBALAMIN [Concomitant]
     Active Substance: CYANOCOBALAMIN
     Indication: Supplementation therapy
     Dosage: UNK
     Route: 048
     Dates: end: 20200907
  10. FOLIC ACID [Concomitant]
     Active Substance: FOLIC ACID
     Indication: Supplementation therapy
     Dosage: UNK
     Route: 048
     Dates: end: 20200616

REACTIONS (7)
  - Hospitalisation [Recovered/Resolved]
  - White blood cell count decreased [Recovered/Resolved]
  - Neutrophil count decreased [Recovered/Resolved]
  - Neutrophil count increased [Recovered/Resolved]
  - Leukocytosis [Recovered/Resolved]
  - Off label use [Recovered/Resolved]
  - Therapy interrupted [Recovered/Resolved]

NARRATIVE: CASE EVENT DATE: 20210526
